FAERS Safety Report 18915835 (Version 1)
Quarter: 2021Q1

REPORT INFORMATION
  Report Type: Spontaneous
  Country: DE (occurrence: DE)
  Receive Date: 20210219
  Receipt Date: 20210219
  Transmission Date: 20210420
  Serious: Yes (Other)
  Sender: FDA-Public Use
  Company Number: DE-SUN PHARMACEUTICAL INDUSTRIES LTD-2021RR-281953

PATIENT
  Age: 59 Year
  Sex: Male
  Weight: 71 kg

DRUGS (5)
  1. AFLIBERCEPT [Concomitant]
     Active Substance: AFLIBERCEPT
     Indication: PRODUCT USED FOR UNKNOWN INDICATION
     Dosage: UNK
     Route: 065
     Dates: start: 20210104
  2. HISTAKUT 4 MG [Concomitant]
     Indication: CHEMOTHERAPY SIDE EFFECT PROPHYLAXIS
     Dosage: UNK
     Route: 065
     Dates: start: 20210104
  3. GRANISETRON 3 MG [Concomitant]
     Indication: CHEMOTHERAPY SIDE EFFECT PROPHYLAXIS
     Dosage: UNK
     Route: 065
     Dates: start: 20210104
  4. OXALIPLATIN SUN 5 MG/ML KONZENTRAT ZUR HERSTELLUNG EINER [Suspect]
     Active Substance: OXALIPLATIN
     Indication: COLON CANCER
     Dosage: 160; IN 250 ML GLUCOSE 5% RUNNING SPEED OF THE INFUSION: 180 ML / H (); CYCLICAL
     Route: 042
     Dates: start: 20210104
  5. DEXAMETHASON 8 MG [Concomitant]
     Indication: CHEMOTHERAPY SIDE EFFECT PROPHYLAXIS
     Dosage: UNK
     Route: 065
     Dates: start: 20210104

REACTIONS (5)
  - Blood pressure increased [Recovered/Resolved]
  - Tachycardia [Recovered/Resolved]
  - Chills [Recovered/Resolved]
  - Tachypnoea [Recovered/Resolved]
  - Dyspnoea [Recovered/Resolved]

NARRATIVE: CASE EVENT DATE: 20210104
